FAERS Safety Report 5183626-X (Version None)
Quarter: 2006Q4

REPORT INFORMATION
  Report Type: 
  Country: None (occurrence: None)
  Receive Date: 20061220
  Receipt Date: 20060125
  Transmission Date: 20070319
  Serious: No
  Sender: FDA-Public Use
  Company Number: US-GLAXOSMITHKLINE-A0590834A

PATIENT
  Age: 58 Year
  Sex: Female

DRUGS (2)
  1. EQUATE NTS 14MG [Suspect]
     Indication: SMOKING CESSATION THERAPY
     Dates: start: 20051101
  2. HABITROL [Suspect]
     Indication: SMOKING CESSATION THERAPY

REACTIONS (5)
  - APPLICATION SITE ERYTHEMA [None]
  - APPLICATION SITE EXCORIATION [None]
  - APPLICATION SITE IRRITATION [None]
  - APPLICATION SITE REACTION [None]
  - SKIN DISCOLOURATION [None]
